FAERS Safety Report 9067677 (Version 4)
Quarter: 2013Q1

REPORT INFORMATION
  Report Type: Spontaneous
  Country: US (occurrence: US)
  Receive Date: 20130128
  Receipt Date: 20130321
  Transmission Date: 20140127
  Serious: Yes (Other)
  Sender: FDA-Public Use
  Company Number: US-PFIZER INC-2013030886

PATIENT
  Age: 61 Year
  Sex: Female
  Weight: 49 kg

DRUGS (4)
  1. ZOLOFT [Suspect]
     Indication: DEPRESSION
     Dosage: 50 MG, DAILY
  2. PROTONIX [Suspect]
     Indication: GASTROOESOPHAGEAL REFLUX DISEASE
     Dosage: 40 MG, DAILY
  3. PREMARIN [Suspect]
     Indication: HYSTERECTOMY
     Dosage: 1.25 MG, DAILY
  4. LISINOPRIL [Concomitant]
     Indication: BLOOD PRESSURE ABNORMAL
     Dosage: 40 MG, 2X/DAY

REACTIONS (2)
  - Vulval cancer [Unknown]
  - Gallbladder disorder [Unknown]
